FAERS Safety Report 21627764 (Version 1)
Quarter: 2022Q4

REPORT INFORMATION
  Report Type: Spontaneous
  Country: US (occurrence: US)
  Receive Date: 20221122
  Receipt Date: 20221122
  Transmission Date: 20230113
  Serious: Yes (Other)
  Sender: FDA-Public Use
  Company Number: US-JNJFOC-20221130684

PATIENT
  Sex: Female

DRUGS (2)
  1. SPRAVATO [Suspect]
     Active Substance: ESKETAMINE
     Indication: Depression
     Dosage: INITIAL TREATMENTS
  2. SPRAVATO [Suspect]
     Active Substance: ESKETAMINE
     Dosage: ELEVENTH TREATMENT

REACTIONS (2)
  - Hypotension [Recovering/Resolving]
  - Feeling abnormal [Recovering/Resolving]
